FAERS Safety Report 6743795-4 (Version None)
Quarter: 2010Q2

REPORT INFORMATION
  Report Type: 
  Country: None (occurrence: None)
  Receive Date: 20100527
  Receipt Date: 20100525
  Transmission Date: 20101027
  Serious: Yes (Life-Threatening)
  Sender: FDA-Public Use
  Company Number: JP-SANOFI-AVENTIS-2009SA007009

PATIENT
  Age: 43 Year
  Sex: Female
  Weight: 60.8 kg

DRUGS (11)
  1. ELPLAT [Suspect]
     Indication: COLON CANCER METASTATIC
     Route: 041
     Dates: start: 20091028, end: 20091028
  2. ELPLAT [Suspect]
     Route: 041
     Dates: start: 20091111, end: 20091111
  3. AVASTIN [Suspect]
     Indication: COLON CANCER METASTATIC
     Route: 041
     Dates: start: 20091028, end: 20091028
  4. AVASTIN [Suspect]
     Route: 041
     Dates: start: 20091111, end: 20091111
  5. FLUOROURACIL [Suspect]
     Indication: COLON CANCER METASTATIC
     Route: 041
     Dates: start: 20091028, end: 20091028
  6. FLUOROURACIL [Suspect]
     Route: 041
     Dates: start: 20091111, end: 20091111
  7. CALCIUM LEVOFOLINATE [Suspect]
     Indication: COLON CANCER METASTATIC
     Route: 041
     Dates: start: 20091028, end: 20091028
  8. CALCIUM LEVOFOLINATE [Suspect]
     Route: 041
     Dates: start: 20091111, end: 20091111
  9. PARIET [Concomitant]
     Route: 065
     Dates: start: 20091009, end: 20091111
  10. DEXAMETHASONE [Concomitant]
     Route: 065
     Dates: start: 20091028, end: 20091111
  11. HYPEN [Concomitant]
     Route: 065
     Dates: start: 20091031, end: 20091111

REACTIONS (2)
  - EMBOLISM [None]
  - GASTROINTESTINAL PERFORATION [None]
